FAERS Safety Report 6232497-9 (Version None)
Quarter: 2009Q2

REPORT INFORMATION
  Report Type: 
  Country: None (occurrence: None)
  Receive Date: 20090617
  Receipt Date: 20090609
  Transmission Date: 20091009
  Serious: Yes (Hospitalization, Other)
  Sender: FDA-Public Use
  Company Number: US-BAYER-200921354NA

PATIENT
  Age: 64 Year
  Sex: Female

DRUGS (1)
  1. AVELOX [Suspect]
     Indication: UPPER RESPIRATORY TRACT INFECTION
     Dosage: UNIT DOSE: 400 MG
     Route: 048

REACTIONS (4)
  - ANAPHYLACTIC REACTION [None]
  - BURNING SENSATION [None]
  - DYSPNOEA [None]
  - PARAESTHESIA [None]
